FAERS Safety Report 16423345 (Version 1)
Quarter: 2019Q2

REPORT INFORMATION
  Report Type: Spontaneous
  Country: US (occurrence: US)
  Receive Date: 20190612
  Receipt Date: 20190612
  Transmission Date: 20190711
  Serious: Yes (Other)
  Sender: FDA-Public Use
  Company Number: US-009507513-1906USA003873

PATIENT
  Age: 16 Year
  Sex: Female

DRUGS (1)
  1. NUVARING [Suspect]
     Active Substance: ETHINYL ESTRADIOL\ETONOGESTREL
     Indication: MENSTRUAL CYCLE MANAGEMENT
     Dosage: SINGLE RING (0.15/0.12 NO UNITS)
     Route: 067
     Dates: start: 201901, end: 20190520

REACTIONS (4)
  - Thyroxine decreased [Not Recovered/Not Resolved]
  - Product use in unapproved indication [Unknown]
  - Hyperthyroidism [Not Recovered/Not Resolved]
  - Tri-iodothyronine increased [Not Recovered/Not Resolved]

NARRATIVE: CASE EVENT DATE: 201901
